FAERS Safety Report 18067792 (Version 1)
Quarter: 2020Q3

REPORT INFORMATION
  Report Type: Spontaneous
  Country: US (occurrence: US)
  Receive Date: 20200724
  Receipt Date: 20200724
  Transmission Date: 20201103
  Serious: No
  Sender: FDA-Public Use
  Company Number: US-009507513-2007USA008387

PATIENT
  Age: 29 Year
  Sex: Female

DRUGS (2)
  1. NUVARING [Suspect]
     Active Substance: ETHINYL ESTRADIOL\ETONOGESTREL
     Dosage: 1 DOSAGE FORM, DOSE: 0.015/0.12 MILLIGRAM
     Route: 067
     Dates: start: 201901
  2. NUVARING [Suspect]
     Active Substance: ETHINYL ESTRADIOL\ETONOGESTREL
     Indication: CONTRACEPTION
     Dosage: 1 DOSAGE FORM, DOSE: 0.015/0.12 MILLIGRAM
     Route: 067
     Dates: start: 20180901, end: 201812

REACTIONS (2)
  - Vulvovaginal mycotic infection [Recovered/Resolved]
  - Vulvovaginal mycotic infection [Recovered/Resolved]

NARRATIVE: CASE EVENT DATE: 2018
